FAERS Safety Report 21573128 (Version 1)
Quarter: 2022Q4

REPORT INFORMATION
  Report Type: Report from Study
  Country: CN (occurrence: CN)
  Receive Date: 20221109
  Receipt Date: 20221109
  Transmission Date: 20230112
  Serious: Yes (Death)
  Sender: FDA-Public Use
  Company Number: CN-002147023-NVSC2022CN252441

PATIENT
  Age: 78 Year
  Sex: Female

DRUGS (1)
  1. ACLASTA [Suspect]
     Active Substance: ZOLEDRONIC ACID
     Indication: Osteoporosis
     Dosage: 1 DOSAGE FORM, Q12MO (ONCE A YEAR) IT WAS NOT KNOWN WHETHER TO CONTINUE TO USE IT NEXT YEAR)
     Route: 042
     Dates: start: 20220222, end: 20220222

REACTIONS (1)
  - Illness [Fatal]
